FAERS Safety Report 6180021-1 (Version None)
Quarter: 2009Q2

REPORT INFORMATION
  Report Type: 
  Country: None (occurrence: None)
  Receive Date: 20090505
  Receipt Date: 20090424
  Transmission Date: 20091009
  Serious: Yes (Hospitalization, Other)
  Sender: FDA-Public Use
  Company Number: US-BAXTER-2008BH006932

PATIENT
  Age: 44 Year
  Sex: Male
  Weight: 52 kg

DRUGS (6)
  1. HEPARIN SODIUM INJECTION [Suspect]
     Indication: INTRAVENOUS CATHETER MANAGEMENT
     Route: 042
     Dates: start: 20050701
  2. VALIUM [Concomitant]
     Indication: DRUG USE FOR UNKNOWN INDICATION
     Dosage: DOSE UNIT:UNKNOWN
     Route: 065
  3. BENADRYL [Concomitant]
     Indication: DRUG USE FOR UNKNOWN INDICATION
     Dosage: DOSE UNIT:UNKNOWN
     Route: 065
  4. MORPHINE [Concomitant]
     Indication: DRUG USE FOR UNKNOWN INDICATION
     Dosage: DOSE UNIT:UNKNOWN
     Route: 065
  5. TPN [Concomitant]
     Indication: DRUG USE FOR UNKNOWN INDICATION
     Route: 065
  6. BANANA BAG [Concomitant]
     Indication: DRUG USE FOR UNKNOWN INDICATION
     Route: 065

REACTIONS (23)
  - BACK PAIN [None]
  - BLOOD DISORDER [None]
  - BLOOD GLUCOSE FLUCTUATION [None]
  - CELLULITIS [None]
  - DIABETES MELLITUS [None]
  - ERECTILE DYSFUNCTION [None]
  - FACIAL PAIN [None]
  - FALL [None]
  - GENERAL PHYSICAL HEALTH DETERIORATION [None]
  - HYPOGLYCAEMIA [None]
  - IMMUNE SYSTEM DISORDER [None]
  - INFECTION [None]
  - LOSS OF CONSCIOUSNESS [None]
  - MUSCLE SPASMS [None]
  - PAIN IN EXTREMITY [None]
  - PARAESTHESIA [None]
  - PSEUDOMONAS INFECTION [None]
  - RHODOCOCCUS INFECTION [None]
  - RIB FRACTURE [None]
  - SKIN ULCER [None]
  - STIFF-MAN SYNDROME [None]
  - TOOTH FRACTURE [None]
  - WEIGHT DECREASED [None]
